FAERS Safety Report 6979966-1 (Version None)
Quarter: 2010Q3

REPORT INFORMATION
  Report Type: 
  Country: None (occurrence: None)
  Receive Date: 20100914
  Receipt Date: 20100908
  Transmission Date: 20110219
  Serious: Yes (Disabling, Other)
  Sender: FDA-Public Use
  Company Number: CA-BAYER-201024451NA

PATIENT
  Age: 36 Year
  Sex: Female
  Weight: 50 kg

DRUGS (2)
  1. MIRENA [Suspect]
     Indication: CONTRACEPTION
     Dosage: FREQUENCY CONTINUOUS
     Route: 015
     Dates: start: 20050105, end: 20100217
  2. CALCIUM [Concomitant]
     Route: 048

REACTIONS (7)
  - ASTHENOPIA [None]
  - DIZZINESS [None]
  - MIGRAINE [None]
  - MIGRAINE WITH AURA [None]
  - NAUSEA [None]
  - VISION BLURRED [None]
  - VISUAL IMPAIRMENT [None]
